FAERS Safety Report 15211585 (Version 5)
Quarter: 2018Q4

REPORT INFORMATION
  Report Type: Report from Study
  Country: ZA (occurrence: ZA)
  Receive Date: 20180729
  Receipt Date: 20181102
  Transmission Date: 20190204
  Serious: Yes (Hospitalization)
  Sender: FDA-Public Use
  Company Number: ZA-SA-2018SA201872

PATIENT
  Age: 73 Year
  Sex: Female

DRUGS (5)
  1. OPTISULIN (INSULIN GLARGINE) [Suspect]
     Active Substance: INSULIN GLARGINE
     Indication: TYPE 2 DIABETES MELLITUS
     Dosage: 30 U, HS
     Dates: start: 20180807
  2. OPTISULIN (INSULIN GLARGINE) [Suspect]
     Active Substance: INSULIN GLARGINE
     Dosage: 33 U, HS
     Route: 065
     Dates: start: 20180611
  3. OPTISULIN (INSULIN GLARGINE) [Suspect]
     Active Substance: INSULIN GLARGINE
     Dosage: 28 U, QD, NIGHT TIME
     Dates: start: 20180612
  4. TOUJEO [Suspect]
     Active Substance: INSULIN GLARGINE
     Indication: TYPE 2 DIABETES MELLITUS
     Dosage: UNK UNK, UNK
     Route: 065
     Dates: start: 20181010
  5. NO STUDY DRUG GIVEN [Suspect]
     Active Substance: UNSPECIFIED INGREDIENT

REACTIONS (15)
  - Vein disorder [Not Recovered/Not Resolved]
  - Chills [Recovered/Resolved]
  - Blood glucose decreased [Recovered/Resolved]
  - Malaise [Unknown]
  - Visual impairment [Recovered/Resolved]
  - Peripheral swelling [Unknown]
  - Limb injury [Not Recovered/Not Resolved]
  - Hyperhidrosis [Recovered/Resolved]
  - Sepsis [Recovered/Resolved]
  - Mass [Not Recovered/Not Resolved]
  - Pain in extremity [Unknown]
  - Pain [Not Recovered/Not Resolved]
  - Coma [Recovered/Resolved]
  - Emotional distress [Not Recovered/Not Resolved]
  - Erythema [Unknown]

NARRATIVE: CASE EVENT DATE: 20180713
